FAERS Safety Report 4885033-3 (Version None)
Quarter: 2006Q1

REPORT INFORMATION
  Report Type: 
  Country: None (occurrence: None)
  Receive Date: 20060119
  Receipt Date: 20051207
  Transmission Date: 20060701
  Serious: Yes (Hospitalization)
  Sender: FDA-Public Use
  Company Number: US-MERCK-0512USA01312

PATIENT
  Age: 70 Year
  Sex: Male
  Weight: 88 kg

DRUGS (5)
  1. VIOXX [Suspect]
     Indication: ARTHRITIS
     Route: 048
     Dates: start: 20000301, end: 20040901
  2. METFORMIN [Concomitant]
     Route: 065
  3. LIPITOR [Concomitant]
     Route: 065
  4. TERAZOSIN HYDROCHLORIDE [Concomitant]
     Route: 065
  5. GLYNASE [Concomitant]
     Route: 065

REACTIONS (14)
  - AORTIC ANEURYSM [None]
  - ARTHRALGIA [None]
  - CARDIOMEGALY [None]
  - CAROTID ARTERY OCCLUSION [None]
  - CEREBRAL ARTERIOSCLEROSIS [None]
  - CEREBROVASCULAR ACCIDENT [None]
  - DEMENTIA [None]
  - INTERVERTEBRAL DISC DISORDER [None]
  - PAIN [None]
  - PROSTATIC DISORDER [None]
  - SPONDYLOLISTHESIS [None]
  - TRANSIENT ISCHAEMIC ATTACK [None]
  - URINARY RETENTION [None]
  - URINARY TRACT INFECTION [None]
